FAERS Safety Report 4997624-X (Version None)
Quarter: 2006Q1

REPORT INFORMATION
  Report Type: 
  Country: None (occurrence: None)
  Receive Date: 20060315
  Receipt Date: 20060112
  Transmission Date: 20060701
  Serious: Yes (Other)
  Sender: FDA-Public Use
  Company Number: 432730

PATIENT
  Age: 56 Year
  Sex: Female

DRUGS (5)
  1. BONIVA [Suspect]
     Dosage: ORAL
     Route: 048
     Dates: start: 20050815
  2. CALCIUM (CALCIUM) [Concomitant]
  3. GLUCOSAMINE (GLUCOSAMINE) [Concomitant]
  4. CHONDROITIN (CHONDROITIN SULFATE) [Concomitant]
  5. 4 CONCOMITANT DRUGS (GENERIC UNKNOWN) [Concomitant]

REACTIONS (1)
  - HYPERCHOLESTEROLAEMIA [None]
